FAERS Safety Report 24092823 (Version 1)
Quarter: 2024Q3

REPORT INFORMATION
  Report Type: Spontaneous
  Country: US (occurrence: US)
  Receive Date: 20240715
  Receipt Date: 20240715
  Transmission Date: 20241017
  Serious: No
  Sender: PFIZER
  Company Number: US-PFIZER INC-202400213940

PATIENT
  Age: 57 Year
  Sex: Female

DRUGS (3)
  1. PAXLOVID [Suspect]
     Active Substance: NIRMATRELVIR\RITONAVIR
     Indication: COVID-19 treatment
     Dosage: UNK UNK, 2X/DAY
     Dates: start: 20240702, end: 20240706
  2. LEXAPRO [Concomitant]
     Active Substance: ESCITALOPRAM OXALATE
     Dates: start: 20240701, end: 20240706
  3. ALLERTEC [CETIRIZINE] [Concomitant]
     Dosage: UNK
     Dates: start: 20240701, end: 20240706

REACTIONS (2)
  - Disease recurrence [Not Recovered/Not Resolved]
  - COVID-19 [Not Recovered/Not Resolved]

NARRATIVE: CASE EVENT DATE: 20240711
